FAERS Safety Report 19982797 (Version 6)
Quarter: 2022Q4

REPORT INFORMATION
  Report Type: Report from Study
  Country: ES (occurrence: ES)
  Receive Date: 20211021
  Receipt Date: 20221123
  Transmission Date: 20230113
  Serious: Yes (Other)
  Sender: FDA-Public Use
  Company Number: ES-TAKEDA-2021TUS064910

PATIENT
  Age: 44 Year
  Sex: Female

DRUGS (28)
  1. TEDUGLUTIDE [Suspect]
     Active Substance: TEDUGLUTIDE
     Indication: Short-bowel syndrome
     Dosage: 2.4 MILLIGRAM, QD
     Route: 042
     Dates: start: 20201105
  2. TEDUGLUTIDE [Suspect]
     Active Substance: TEDUGLUTIDE
     Indication: Short-bowel syndrome
     Dosage: 2.4 MILLIGRAM, QD
     Route: 042
     Dates: start: 20201105
  3. TEDUGLUTIDE [Suspect]
     Active Substance: TEDUGLUTIDE
     Indication: Short-bowel syndrome
     Dosage: 2.4 MILLIGRAM, QD
     Route: 042
     Dates: start: 20201105
  4. TEDUGLUTIDE [Suspect]
     Active Substance: TEDUGLUTIDE
     Indication: Short-bowel syndrome
     Dosage: 2.4 MILLIGRAM, QD
     Route: 042
     Dates: start: 20201105
  5. DUOFEMME [Concomitant]
     Indication: Premenstrual syndrome
     Dosage: 1 DOSAGE FORM, QD
     Route: 048
     Dates: start: 20210801
  6. DUOFEMME [Concomitant]
     Dosage: 1 DOSAGE FORM, QD
     Route: 048
     Dates: start: 20220726
  7. CEFUROXIME [Concomitant]
     Active Substance: CEFUROXIME
     Indication: Cystitis
     Dosage: 500 MILLIGRAM, QD
     Route: 048
     Dates: start: 20201006, end: 20201016
  8. DEXKETOPROFEN TROMETAMOL [Concomitant]
     Active Substance: DEXKETOPROFEN TROMETAMOL
     Indication: Nephritis
     Dosage: 25 MILLIGRAM, TID
     Route: 048
     Dates: start: 20201002
  9. DEXKETOPROFEN TROMETAMOL [Concomitant]
     Active Substance: DEXKETOPROFEN TROMETAMOL
     Indication: Pain
  10. ACETAMINOPHEN [Concomitant]
     Active Substance: ACETAMINOPHEN
     Indication: Nephritis
     Dosage: 1 GRAM, TID
     Route: 048
     Dates: start: 20201002, end: 20201222
  11. ACETAMINOPHEN [Concomitant]
     Active Substance: ACETAMINOPHEN
     Indication: COVID-19 immunisation
     Dosage: UNK
     Route: 048
     Dates: start: 20220321, end: 20220607
  12. MICALDEOS [Concomitant]
     Indication: Prophylaxis
     Dosage: 1 DOSAGE FORM, QD
     Route: 048
     Dates: start: 20211213
  13. PRISTIQ EXTENDED-RELEASE [Concomitant]
     Active Substance: DESVENLAFAXINE SUCCINATE
     Indication: Depressive symptom
     Dosage: 1 DOSAGE FORM, QD
     Route: 048
     Dates: start: 20211207
  14. TRISEQUENS [Concomitant]
     Active Substance: ESTRADIOL\NORETHINDRONE ACETATE
     Indication: Premenstrual syndrome
     Dosage: 1 DOSAGE FORM, QD
     Route: 048
     Dates: start: 20220719, end: 20220721
  15. Magnogene [Concomitant]
     Indication: Prophylaxis
     Dosage: UNK UNK, QD
     Route: 048
     Dates: start: 20020509
  16. MASTICAL D [Concomitant]
     Indication: Prophylaxis
     Dosage: UNK UNK, QOD
     Route: 048
     Dates: start: 20190201, end: 20211213
  17. LANSOPRAZOLE [Concomitant]
     Active Substance: LANSOPRAZOLE
     Indication: Abdominal pain upper
     Dosage: UNK UNK, QD
     Route: 048
     Dates: start: 20100510
  18. CALCIFEDIOL [Concomitant]
     Active Substance: CALCIFEDIOL
     Indication: Vitamin D deficiency
     Dosage: UNK
     Route: 048
     Dates: start: 20130319
  19. FLUTICASONE FUROATE [Concomitant]
     Active Substance: FLUTICASONE FUROATE
     Indication: Asthma
     Dosage: UNK
     Route: 055
     Dates: start: 20190201
  20. FLUTICASONE FUROATE [Concomitant]
     Active Substance: FLUTICASONE FUROATE
     Indication: Rhinitis
  21. EBASTINE [Concomitant]
     Active Substance: EBASTINE
     Indication: Rhinitis allergic
     Dosage: UNK UNK, QD
     Route: 048
     Dates: start: 20100511
  22. SYMBICORT [Concomitant]
     Active Substance: BUDESONIDE\FORMOTEROL FUMARATE DIHYDRATE
     Indication: Asthma
     Dosage: UNK
     Route: 055
     Dates: start: 20100511
  23. SYMBICORT [Concomitant]
     Active Substance: BUDESONIDE\FORMOTEROL FUMARATE DIHYDRATE
     Indication: Rhinitis allergic
  24. RIVOTRIL [Concomitant]
     Active Substance: CLONAZEPAM
     Indication: Anxiety
     Dosage: 0.50 MILLIGRAM, QD
     Route: 048
     Dates: start: 20120223
  25. RIFAXIMIN [Concomitant]
     Active Substance: RIFAXIMIN
     Indication: Overgrowth bacterial
     Dosage: UNK UNK, TID
     Route: 048
     Dates: start: 20170328
  26. DAPTOMYCIN [Concomitant]
     Active Substance: DAPTOMYCIN
     Indication: Device related bacteraemia
     Dosage: 500 MILLIGRAM, QD
     Route: 042
     Dates: start: 20200406, end: 20200416
  27. MEROPENEM [Concomitant]
     Active Substance: MEROPENEM
     Indication: Pyrexia
     Dosage: 1000 MILLIGRAM, TID
     Route: 042
     Dates: start: 20200408, end: 20200409
  28. TAUROLIDINE [Concomitant]
     Active Substance: TAUROLIDINE
     Indication: Device related infection
     Dosage: 2 MILLILITER
     Route: 050
     Dates: start: 20200429

REACTIONS (1)
  - Medical device site abscess [Recovered/Resolved]

NARRATIVE: CASE EVENT DATE: 20211011
